FAERS Safety Report 6802785-3 (Version None)
Quarter: 2010Q2

REPORT INFORMATION
  Report Type: 
  Country: None (occurrence: None)
  Receive Date: 20100628
  Receipt Date: 20100318
  Transmission Date: 20101027
  Serious: Yes (Other)
  Sender: FDA-Public Use
  Company Number: DE-EISAI INC.-E3810-03638-SPO-DE

PATIENT
  Sex: Male

DRUGS (1)
  1. PARIET (RABEPRAZOLE) [Suspect]
     Dosage: UNKNOWN
     Route: 048

REACTIONS (1)
  - ATRIAL FIBRILLATION [None]
